FAERS Safety Report 9380473 (Version 1)
Quarter: 2013Q3

REPORT INFORMATION
  Report Type: Spontaneous
  Country: US (occurrence: US)
  Receive Date: 20130702
  Receipt Date: 20130702
  Transmission Date: 20140515
  Serious: Yes (Hospitalization)
  Sender: FDA-Public Use
  Company Number: US-ABBOTT-13P-163-1100677-00

PATIENT
  Age: 60 Year
  Sex: Female
  Weight: 52.21 kg

DRUGS (7)
  1. CREON [Suspect]
     Indication: PANCREATITIS CHRONIC
     Dosage: TOOK ONE ON MONDAY AT LUNCH AND 1 CAPSULE AT BREAKFAST ON 28 MAY 2013; TOTAL OF 2 CAPSULES
     Route: 048
     Dates: start: 20130527, end: 20130528
  2. BYSTOLIC [Concomitant]
     Indication: PRODUCT USED FOR UNKNOWN INDICATION
     Route: 048
  3. CRESTOR [Concomitant]
     Indication: PRODUCT USED FOR UNKNOWN INDICATION
     Route: 048
  4. VITAMIN E [Concomitant]
     Indication: VITAMIN SUPPLEMENTATION
  5. ASPIRIN [Concomitant]
     Indication: PRODUCT USED FOR UNKNOWN INDICATION
     Route: 048
  6. CLONIDINE [Concomitant]
     Indication: HYPERTENSION
     Dates: start: 201212
  7. XANAX [Concomitant]
     Indication: HYPERTENSION
     Dates: start: 2013

REACTIONS (9)
  - Blood pressure increased [Recovered/Resolved]
  - Hypotension [Recovered/Resolved]
  - Nausea [Recovered/Resolved]
  - Dizziness [Recovered/Resolved]
  - Diarrhoea [Recovered/Resolved]
  - Dizziness [Recovered/Resolved]
  - Abdominal pain upper [Recovered/Resolved]
  - Malaise [Unknown]
  - Malaise [Not Recovered/Not Resolved]
